FAERS Safety Report 18731495 (Version 1)
Quarter: 2021Q1

REPORT INFORMATION
  Report Type: Spontaneous
  Country: US (occurrence: US)
  Receive Date: 20210112
  Receipt Date: 20210112
  Transmission Date: 20210419
  Serious: No
  Sender: FDA-Public Use
  Company Number: US-SA-2021SA007024

PATIENT
  Age: 19 Year
  Sex: Female

DRUGS (1)
  1. ADMELOG [Suspect]
     Active Substance: INSULIN LISPRO
     Dosage: 11 UNITS TWICE A DAY BEFORE MEALS
     Route: 065

REACTIONS (1)
  - Poor quality product administered [Unknown]
